FAERS Safety Report 6098316-9 (Version None)
Quarter: 2009Q1

REPORT INFORMATION
  Report Type: 
  Country: None (occurrence: None)
  Receive Date: 20090302
  Receipt Date: 20090218
  Transmission Date: 20090719
  Serious: Yes (Life-Threatening)
  Sender: FDA-Public Use
  Company Number: JP-PFIZER INC-2009175561

PATIENT

DRUGS (4)
  1. LIPITOR [Suspect]
     Indication: HYPERCHOLESTEROLAEMIA
     Dosage: 10 MG, UNK
     Route: 048
     Dates: start: 20081120
  2. CYTOTEC [Suspect]
     Dosage: 200 MG, UNK
     Route: 048
  3. ALENDRONATE SODIUM [Suspect]
     Dosage: 5 MG, UNK
     Route: 048
  4. LOXONIN [Suspect]
     Dosage: 60 MG, UNK
     Route: 048

REACTIONS (1)
  - HEPATIC FUNCTION ABNORMAL [None]
